FAERS Safety Report 9369790 (Version 1)
Quarter: 2013Q2

REPORT INFORMATION
  Report Type: Spontaneous
  Country: CN (occurrence: CN)
  Receive Date: 20130626
  Receipt Date: 20130626
  Transmission Date: 20140414
  Serious: Yes (Other)
  Sender: FDA-Public Use
  Company Number: CN-BAYER-2013-077173

PATIENT
  Age: 60 Year
  Sex: Female

DRUGS (1)
  1. ULTRAVIST 370 [Suspect]
     Indication: ALLERGY TEST
     Dosage: 1 ML, ONCE
     Dates: start: 201306, end: 201306

REACTIONS (2)
  - Urinary incontinence [Recovered/Resolved]
  - Laryngeal oedema [Recovered/Resolved]
